FAERS Safety Report 24073205 (Version 4)
Quarter: 2024Q3

REPORT INFORMATION
  Report Type: Spontaneous
  Country: US (occurrence: US)
  Receive Date: 20240710
  Receipt Date: 20240719
  Transmission Date: 20241016
  Serious: Yes (Other)
  Sender: AMGEN
  Company Number: US-AMGEN-USASP2024135892

PATIENT
  Sex: Male

DRUGS (1)
  1. REPATHA [Suspect]
     Active Substance: EVOLOCUMAB
     Indication: Product used for unknown indication
     Dosage: UNK
     Route: 065

REACTIONS (6)
  - Pulmonary thrombosis [Unknown]
  - Pneumonia [Unknown]
  - Pulmonary fibrosis [Unknown]
  - Device difficult to use [Unknown]
  - Wrong technique in product usage process [Unknown]
  - COVID-19 [Unknown]
